FAERS Safety Report 5159785-1 (Version None)
Quarter: 2006Q4

REPORT INFORMATION
  Report Type: 
  Country: None (occurrence: None)
  Receive Date: 20061129
  Receipt Date: 20051130
  Transmission Date: 20070319
  Serious: No
  Sender: FDA-Public Use
  Company Number: 2005-04651

PATIENT
  Age: 48 Year
  Sex: Female
  Weight: 136.4 kg

DRUGS (4)
  1. BUPROPION HCL [Suspect]
     Indication: DEPRESSION
     Dosage: 150MG PER DAY
     Route: 048
     Dates: start: 20051121, end: 20051125
  2. CELEXA [Concomitant]
     Indication: DEPRESSION
     Dosage: 60MG PER DAY
     Route: 065
  3. BENADRYL [Concomitant]
     Route: 065
  4. UNKNOWN MEDICATION [Concomitant]
     Route: 065

REACTIONS (4)
  - CHEST DISCOMFORT [None]
  - EYE PRURITUS [None]
  - PRURITUS GENERALISED [None]
  - RHINORRHOEA [None]
